FAERS Safety Report 12176723 (Version 1)
Quarter: 2016Q1

REPORT INFORMATION
  Report Type: Spontaneous
  Country: US (occurrence: US)
  Receive Date: 20160314
  Receipt Date: 20160314
  Transmission Date: 20160526
  Serious: No
  Sender: FDA-Public Use
  Company Number: US-AKORN PHARMACEUTICALS-2015AKN00126

PATIENT
  Age: 32 Year
  Sex: Female
  Weight: 61.22 kg

DRUGS (10)
  1. BENZOYL PEROXIDE GEL [Concomitant]
  2. CATAPRES [Concomitant]
     Active Substance: CLONIDINE HYDROCHLORIDE
  3. HYPERCARE [Concomitant]
     Active Substance: ALCOHOL\ALUMINUM CHLORIDE
  4. EFFEXOR [Concomitant]
     Active Substance: VENLAFAXINE HYDROCHLORIDE
  5. BUSPAR [Concomitant]
     Active Substance: BUSPIRONE HYDROCHLORIDE
  6. PROVIGIL [Concomitant]
     Active Substance: MODAFINIL
     Dosage: UNK
     Dates: end: 201502
  7. MYORISAN [Suspect]
     Active Substance: ISOTRETINOIN
     Indication: ACNE
     Dosage: 60 MG, 1X/DAY
     Dates: start: 20141124, end: 20150215
  8. MICROZIDE [Concomitant]
     Active Substance: HYDROCHLOROTHIAZIDE
  9. LORYNA [Concomitant]
     Active Substance: DROSPIRENONE\ETHINYL ESTRADIOL
  10. IUD NOS [Concomitant]
     Active Substance: COPPER OR LEVONORGESTREL
     Dosage: UNK
     Dates: start: 201412

REACTIONS (3)
  - Fluid retention [Not Recovered/Not Resolved]
  - Pain [Not Recovered/Not Resolved]
  - Fatigue [Not Recovered/Not Resolved]

NARRATIVE: CASE EVENT DATE: 201502
